FAERS Safety Report 5721401-5 (Version None)
Quarter: 2008Q2

REPORT INFORMATION
  Report Type: 
  Country: None (occurrence: None)
  Receive Date: 20080429
  Receipt Date: 20080418
  Transmission Date: 20081010
  Serious: Yes (Disabling, Other)
  Sender: FDA-Public Use
  Company Number: JP-JNJFOC-20080102291

PATIENT
  Age: 8 Month
  Sex: Female

DRUGS (60)
  1. TOPINA [Suspect]
     Route: 048
  2. TOPINA [Suspect]
     Route: 048
  3. TOPINA [Suspect]
     Route: 048
  4. TOPINA [Suspect]
     Route: 048
  5. TOPINA [Suspect]
     Route: 048
  6. TOPINA [Suspect]
     Route: 048
  7. TOPINA [Suspect]
     Route: 048
  8. TOPINA [Suspect]
     Route: 048
  9. TOPINA [Suspect]
     Indication: CONVULSION
     Route: 048
  10. PHENOBAL [Interacting]
     Route: 048
  11. PHENOBAL [Interacting]
     Route: 048
  12. PHENOBAL [Interacting]
     Route: 048
  13. PHENOBAL [Interacting]
     Route: 048
  14. PHENOBAL [Interacting]
     Route: 048
  15. PHENOBAL [Interacting]
     Route: 048
  16. PHENOBAL [Interacting]
     Route: 048
  17. PHENOBAL [Interacting]
     Route: 048
  18. PHENOBAL [Interacting]
     Route: 048
  19. PHENOBAL [Interacting]
     Route: 048
  20. PHENOBAL [Interacting]
     Route: 048
  21. PHENOBAL [Interacting]
     Route: 048
  22. PHENOBAL [Interacting]
     Route: 048
  23. PHENOBAL [Interacting]
     Route: 048
  24. PHENOBAL [Interacting]
     Route: 048
  25. PHENOBAL [Interacting]
     Indication: EPILEPSY
     Route: 048
  26. WAKOBITAL [Interacting]
     Route: 054
  27. WAKOBITAL [Interacting]
     Route: 054
  28. WAKOBITAL [Interacting]
     Route: 054
  29. WAKOBITAL [Interacting]
     Route: 054
  30. WAKOBITAL [Interacting]
     Route: 054
  31. WAKOBITAL [Interacting]
     Route: 054
  32. WAKOBITAL [Interacting]
     Route: 054
  33. WAKOBITAL [Interacting]
     Dosage: 50 ^DF^ DAILY
     Route: 054
  34. WAKOBITAL [Interacting]
     Route: 054
  35. WAKOBITAL [Interacting]
     Route: 054
  36. WAKOBITAL [Interacting]
     Route: 054
  37. WAKOBITAL [Interacting]
     Route: 054
  38. WAKOBITAL [Interacting]
     Route: 054
  39. WAKOBITAL [Interacting]
     Route: 054
  40. WAKOBITAL [Interacting]
     Route: 054
  41. WAKOBITAL [Interacting]
     Indication: EPILEPSY
     Route: 054
  42. UNASYN [Concomitant]
     Route: 042
  43. UNASYN [Concomitant]
     Route: 042
  44. MEROPEN [Concomitant]
     Route: 042
  45. MEROPEN [Concomitant]
     Route: 042
  46. MEROPEN [Concomitant]
     Route: 042
  47. RIVOTRIL [Concomitant]
     Route: 048
  48. INCREMIN [Concomitant]
     Route: 048
  49. MUCODYNE [Concomitant]
     Route: 048
  50. GASMOTIN [Concomitant]
     Route: 048
  51. FAMOTIDINE [Concomitant]
     Route: 048
  52. POTASSIUM BROMIDE [Concomitant]
     Route: 048
  53. PROPETO [Concomitant]
     Route: 061
  54. PROPETO [Concomitant]
     Route: 061
  55. PROPETO [Concomitant]
     Route: 061
  56. RINDERON [Concomitant]
     Route: 061
  57. SAWACILLIN [Concomitant]
     Route: 048
  58. BIOFERMIN R [Concomitant]
     Route: 048
  59. GLUCONSAN K [Concomitant]
  60. ALMETA [Concomitant]
     Route: 048

REACTIONS (5)
  - ABDOMINAL DISTENSION [None]
  - ANTICONVULSANT DRUG LEVEL BELOW THERAPEUTIC [None]
  - DIARRHOEA [None]
  - DRUG INTERACTION [None]
  - INTESTINAL PERFORATION [None]
